FAERS Safety Report 26188155 (Version 1)
Quarter: 2025Q4

REPORT INFORMATION
  Report Type: Spontaneous
  Country: JP (occurrence: JP)
  Receive Date: 20251222
  Receipt Date: 20251222
  Transmission Date: 20260118
  Serious: Yes (Other)
  Sender: PFIZER
  Company Number: JP-PFIZER INC-PV202500134057

PATIENT
  Age: 74 Year
  Weight: 42.6 kg

DRUGS (1)
  1. PRECEDEX [Suspect]
     Active Substance: DEXMEDETOMIDINE HYDROCHLORIDE
     Indication: Sedative therapy
     Dosage: 15.8 ML (STARTED AT 65 ML/HOUR, CONTINUOUS ADMINISTRATION OF THE DRUG AT 6.5 ML/HOUR)
     Route: 042
     Dates: start: 20251112, end: 20251112

REACTIONS (4)
  - Restlessness [Recovered/Resolved]
  - Agitation [Recovered/Resolved]
  - Emotional distress [Unknown]
  - Movement disorder [Unknown]

NARRATIVE: CASE EVENT DATE: 20251112
